FAERS Safety Report 6249912-7 (Version None)
Quarter: 2009Q2

REPORT INFORMATION
  Report Type: 
  Country: None (occurrence: None)
  Receive Date: 20090625
  Receipt Date: 20090615
  Transmission Date: 20091009
  Serious: Yes (Hospitalization)
  Sender: FDA-Public Use
  Company Number: GXKR2009PL06474

PATIENT
  Age: 68 Year
  Sex: Female

DRUGS (3)
  1. CARBAMAZEPINE [Suspect]
     Indication: TRIGEMINAL NEURALGIA
     Dosage: 800 MG/DAY; 600 MG/DAY;
  2. SPIRONOLACTONE [Suspect]
     Indication: HYPERTENSION
     Dosage: 100 MG/DAY; 200 MG/DAY; 300 MG/DAY
  3. ATENOLOL [Concomitant]

REACTIONS (4)
  - DRUG INEFFECTIVE [None]
  - DRUG INTERACTION [None]
  - HYPERTENSION [None]
  - TACHYCARDIA [None]
